FAERS Safety Report 22339187 (Version 1)
Quarter: 2023Q2

REPORT INFORMATION
  Report Type: Report from Study
  Country: CA (occurrence: CA)
  Receive Date: 20230518
  Receipt Date: 20230518
  Transmission Date: 20230721
  Serious: Yes (Other)
  Sender: FDA-Public Use
  Company Number: CA-PFIZER INC-202300192038

PATIENT
  Sex: Female

DRUGS (3)
  1. IBRANCE [Suspect]
     Active Substance: PALBOCICLIB
     Dosage: UNK
     Route: 065
  2. ADVIL [Suspect]
     Active Substance: IBUPROFEN
     Route: 065
  3. GELATIN [Suspect]
     Active Substance: GELATIN
     Route: 065

REACTIONS (6)
  - Anaphylactic reaction [Unknown]
  - Body surface area increased [Unknown]
  - Cough [Unknown]
  - Drug hypersensitivity [Unknown]
  - Sneezing [Unknown]
  - Weight increased [Unknown]
